FAERS Safety Report 18012642 (Version 1)
Quarter: 2020Q3

REPORT INFORMATION
  Report Type: Spontaneous
  Country: US (occurrence: US)
  Receive Date: 20200713
  Receipt Date: 20200713
  Transmission Date: 20201103
  Serious: Yes (Other)
  Sender: FDA-Public Use
  Company Number: US-ABBVIE-20K-163-3462741-00

PATIENT
  Age: 57 Year
  Sex: Female

DRUGS (1)
  1. HUMIRA [Suspect]
     Active Substance: ADALIMUMAB
     Indication: HIDRADENITIS
     Route: 058

REACTIONS (7)
  - Breast haemorrhage [Unknown]
  - Mood altered [Unknown]
  - Dental operation [Not Recovered/Not Resolved]
  - Toothache [Not Recovered/Not Resolved]
  - Pain [Unknown]
  - Device issue [Unknown]
  - Breast cancer female [Unknown]

NARRATIVE: CASE EVENT DATE: 2020
